FAERS Safety Report 9411185 (Version 2)
Quarter: 2013Q3

REPORT INFORMATION
  Report Type: Report from Study
  Country: US (occurrence: US)
  Receive Date: 20130721
  Receipt Date: 20130912
  Transmission Date: 20140515
  Serious: Yes (Other)
  Sender: FDA-Public Use
  Company Number: US-MYLANLABS-2013S1015439

PATIENT
  Age: 23 Year
  Sex: Female

DRUGS (2)
  1. AMNESTEEM CAPSULES [Suspect]
     Dates: start: 20130111, end: 2013
  2. MYORISAN [Suspect]
     Dates: start: 20130111, end: 2013

REACTIONS (1)
  - Exposure during pregnancy [Not Recovered/Not Resolved]
